FAERS Safety Report 21653110 (Version 1)
Quarter: 2022Q4

REPORT INFORMATION
  Report Type: Spontaneous
  Country: US (occurrence: US)
  Receive Date: 20221128
  Receipt Date: 20221128
  Transmission Date: 20230113
  Serious: Yes (Other)
  Sender: FDA-Public Use
  Company Number: US-GILEAD-2022-0606469

PATIENT
  Age: 30 Year
  Sex: Female

DRUGS (2)
  1. ATRIPLA [Suspect]
     Active Substance: EFAVIRENZ\EMTRICITABINE\TENOFOVIR DISOPROXIL FUMARATE
     Indication: Product used for unknown indication
     Dosage: UNK
     Route: 065
  2. PREDNISONE [Suspect]
     Active Substance: PREDNISONE
     Indication: Immune reconstitution inflammatory syndrome associated Kaposi^s sarcoma
     Dosage: UNK
     Route: 065

REACTIONS (4)
  - Immune reconstitution inflammatory syndrome [Unknown]
  - Swelling [Unknown]
  - Pyrexia [Unknown]
  - Anaemia [Unknown]
